FAERS Safety Report 8258737-2 (Version None)
Quarter: 2012Q2

REPORT INFORMATION
  Report Type: 
  Country: None (occurrence: None)
  Receive Date: 20120404
  Receipt Date: 20120404
  Transmission Date: 20120825
  Serious: No
  Sender: FDA-Public Use
  Company Number: None

PATIENT
  Sex: Female
  Weight: 74.842 kg

DRUGS (1)
  1. NIFEDIPINE [Suspect]
     Indication: HYPERTENSION
     Dosage: 30 MG
     Route: 051
     Dates: start: 20110530, end: 20120104

REACTIONS (11)
  - PERICARDITIS [None]
  - ABASIA [None]
  - WRONG DRUG ADMINISTERED [None]
  - TACHYCARDIA [None]
  - ANXIETY [None]
  - EXERCISE TOLERANCE DECREASED [None]
  - COUGH [None]
  - EOSINOPHILIA [None]
  - NASOPHARYNGITIS [None]
  - HYPOTENSION [None]
  - PERICARDIAL RUB [None]
